FAERS Safety Report 4839748-3 (Version None)
Quarter: 2005Q4

REPORT INFORMATION
  Report Type: 
  Country: None (occurrence: None)
  Receive Date: 20051129
  Receipt Date: 20050804
  Transmission Date: 20060501
  Serious: No
  Sender: FDA-Public Use
  Company Number: US-GLAXOSMITHKLINE-A0568954A

PATIENT
  Age: 63 Year
  Sex: Male

DRUGS (8)
  1. WELLBUTRIN SR [Suspect]
     Indication: DEPRESSION
     Dosage: 150MG PER DAY
     Route: 048
  2. WELLBUTRIN [Suspect]
     Indication: DEPRESSION
     Dosage: 100MG PER DAY
     Route: 048
  3. INTERFERON ALPHA 2B [Concomitant]
  4. TENORMIN [Concomitant]
  5. ALLOPURINOL [Concomitant]
  6. NEURONTIN [Concomitant]
  7. TAMOXIFEN [Concomitant]
  8. ASPIRIN [Concomitant]

REACTIONS (2)
  - ANXIETY [None]
  - PHARMACEUTICAL PRODUCT COMPLAINT [None]
